FAERS Safety Report 6251647-1 (Version None)
Quarter: 2009Q2

REPORT INFORMATION
  Report Type: 
  Country: None (occurrence: None)
  Receive Date: 20090630
  Receipt Date: 20090622
  Transmission Date: 20091009
  Serious: Yes (Other)
  Sender: FDA-Public Use
  Company Number: US-PFIZER INC-2009221640

PATIENT
  Age: 55 Year
  Sex: Male
  Weight: 87 kg

DRUGS (8)
  1. SILDENAFIL CITRATE [Suspect]
     Indication: PULMONARY HYPERTENSION
     Dosage: 20 MG, 3X/DAY
     Dates: start: 20090513
  2. MILRINONE [Concomitant]
     Dosage: UNK
     Dates: start: 20090515
  3. CEFUROXIME [Concomitant]
     Dosage: UNK
     Dates: start: 20090512
  4. EPOGEN [Concomitant]
     Dosage: UNK
     Dates: start: 20090518
  5. WARFARIN [Concomitant]
     Dosage: 1 MG, UNK
  6. FUROSEMIDE [Concomitant]
     Dosage: UNK
     Dates: start: 20090517
  7. LEVAQUIN [Concomitant]
     Dosage: UNK
     Dates: start: 20090516, end: 20090519
  8. LORTAB [Concomitant]
     Dosage: UNK
     Dates: start: 20090516, end: 20090517

REACTIONS (1)
  - PANCREATITIS [None]
